FAERS Safety Report 23353951 (Version 2)
Quarter: 2024Q1

REPORT INFORMATION
  Report Type: Spontaneous
  Country: JP (occurrence: JP)
  Receive Date: 20240101
  Receipt Date: 20240119
  Transmission Date: 20240410
  Serious: Yes (Other)
  Sender: FDA-Public Use
  Company Number: JP-CHUGAI-2023045551

PATIENT
  Age: 8 Decade
  Sex: Male

DRUGS (2)
  1. ACTEMRA [Suspect]
     Active Substance: TOCILIZUMAB
     Indication: Cytokine release syndrome
     Dosage: 8 MILLIGRAM, BID
     Route: 065
  2. EPCORITAMAB [Concomitant]
     Active Substance: EPCORITAMAB

REACTIONS (1)
  - Arrhythmia [Recovered/Resolved]
